FAERS Safety Report 5263828-4 (Version None)
Quarter: 2007Q1

REPORT INFORMATION
  Report Type: 
  Country: None (occurrence: None)
  Receive Date: 20070313
  Receipt Date: 20070302
  Transmission Date: 20070707
  Serious: Yes (Life-Threatening)
  Sender: FDA-Public Use
  Company Number: GB-GLAXOSMITHKLINE-B0457508A

PATIENT
  Age: 39 Year
  Sex: Female

DRUGS (4)
  1. IMIGRAN RECOVERY [Suspect]
     Indication: MIGRAINE
     Dosage: 50MG SINGLE DOSE
     Route: 065
     Dates: start: 20070302, end: 20070302
  2. CITALOPRAM HYDROBROMIDE [Suspect]
     Route: 065
  3. MICROGYNON 30 [Concomitant]
     Route: 065
  4. IMODIUM [Concomitant]
     Route: 065

REACTIONS (11)
  - ABASIA [None]
  - ANAPHYLACTIC SHOCK [None]
  - CHEST DISCOMFORT [None]
  - CHEST PAIN [None]
  - CIRCULATORY COLLAPSE [None]
  - DIARRHOEA [None]
  - DRUG INTERACTION [None]
  - DYSPNOEA [None]
  - HYPERHIDROSIS [None]
  - MALAISE [None]
  - THROAT TIGHTNESS [None]
